FAERS Safety Report 6509757-7 (Version None)
Quarter: 2009Q4

REPORT INFORMATION
  Report Type: 
  Country: None (occurrence: None)
  Receive Date: 20091222
  Receipt Date: 20091221
  Transmission Date: 20100525
  Serious: Yes (Hospitalization, Disabling)
  Sender: FDA-Public Use
  Company Number: FR-WYE-G05188809

PATIENT
  Age: 45 Year
  Sex: Female
  Weight: 76 kg

DRUGS (4)
  1. EFFEXOR [Suspect]
     Indication: DEPRESSION
     Dosage: 75 MG TOTAL DAILY
     Route: 048
     Dates: start: 20070901, end: 20080701
  2. EFFEXOR [Suspect]
     Indication: PHOBIA OF FLYING
     Route: 048
     Dates: start: 20080701, end: 20080701
  3. XANAX [Concomitant]
     Dosage: 0.75 MG TOTAL DAILY
     Route: 048
  4. DESOGESTREL AND ETHINYL ESTRADIOL [Suspect]
     Indication: CONTRACEPTION
     Dosage: UNKNOWN
     Dates: end: 20090201

REACTIONS (11)
  - ACCOMMODATION DISORDER [None]
  - CEREBRAL VENOUS THROMBOSIS [None]
  - DRUG WITHDRAWAL SYNDROME [None]
  - DURAL FISTULA [None]
  - FATIGUE [None]
  - INCREASED APPETITE [None]
  - INTRACRANIAL PRESSURE INCREASED [None]
  - NAUSEA [None]
  - TINNITUS [None]
  - VISUAL ACUITY REDUCED [None]
  - WEIGHT INCREASED [None]
